FAERS Safety Report 13030191 (Version 1)
Quarter: 2016Q4

REPORT INFORMATION
  Report Type: Spontaneous
  Country: FR (occurrence: FR)
  Receive Date: 20161215
  Receipt Date: 20161215
  Transmission Date: 20170207
  Serious: Yes (Hospitalization)
  Sender: FDA-Public Use
  Company Number: FR-TEVA-718481ROM

PATIENT
  Age: 57 Year
  Sex: Female

DRUGS (8)
  1. PREDNISONE. [Suspect]
     Active Substance: PREDNISONE
     Indication: DIFFUSE LARGE B-CELL LYMPHOMA RECURRENT
     Dosage: A TOTAL OF EIGHT COURSES OF CHEMOTHERAPY PROTOCOL R-CHOP
     Route: 048
     Dates: start: 201510, end: 20160208
  2. ENDOXAN 1000 MG [Suspect]
     Active Substance: CYCLOPHOSPHAMIDE
     Indication: DIFFUSE LARGE B-CELL LYMPHOMA RECURRENT
     Dosage: 1 DOSAGE FORMS DAILY;
     Route: 042
     Dates: start: 201510, end: 20160208
  3. ETOPOPHOS [Suspect]
     Active Substance: ETOPOSIDE PHOSPHATE
     Indication: DIFFUSE LARGE B-CELL LYMPHOMA RECURRENT
     Route: 042
     Dates: start: 201510, end: 20160208
  4. INNOHEP [Suspect]
     Active Substance: TINZAPARIN SODIUM
     Indication: PULMONARY EMBOLISM
     Dosage: 1 DOSAGE FORMS DAILY;
     Route: 058
     Dates: start: 20160427, end: 20160805
  5. DOXORUBICINE TEVA [Suspect]
     Active Substance: DOXORUBICIN
     Indication: DIFFUSE LARGE B-CELL LYMPHOMA RECURRENT
     Dosage: A TOTAL OF EIGHT COURSES OF CHEMOTHERAPY PROTOCOL R-CHOP
     Route: 042
     Dates: start: 201510, end: 20160208
  6. MABTHERA [Suspect]
     Active Substance: RITUXIMAB
     Indication: DIFFUSE LARGE B-CELL LYMPHOMA RECURRENT
     Route: 042
     Dates: start: 201510, end: 20160208
  7. METHOTREXATE (METHOTREXATE SODIUM) [Suspect]
     Active Substance: METHOTREXATE SODIUM
     Indication: DIFFUSE LARGE B-CELL LYMPHOMA RECURRENT
     Dosage: A TOTAL OF 2 COURSES RECEIVED
     Route: 042
     Dates: start: 20160324, end: 20160406
  8. UROMITEXAN [Concomitant]
     Active Substance: MESNA
     Dosage: A TOTAL OF EIGHT COURSES OF CHEMOTHERAPY PROTOCOL R-CHOP
     Route: 042
     Dates: start: 201510, end: 20160208

REACTIONS (2)
  - Cystitis [Not Recovered/Not Resolved]
  - Haematuria [Recovered/Resolved]

NARRATIVE: CASE EVENT DATE: 201604
